FAERS Safety Report 7999226-X (Version None)
Quarter: 2011Q4

REPORT INFORMATION
  Report Type: 
  Country: None (occurrence: None)
  Receive Date: 20111221
  Receipt Date: 20111215
  Transmission Date: 20120403
  Serious: Yes (Disabling, Congenital Anomaly, Other)
  Sender: FDA-Public Use
  Company Number: DK-PFIZER INC-2011289031

PATIENT
  Sex: Male

DRUGS (6)
  1. PENTREXYL [Concomitant]
     Dosage: UNK
     Route: 064
     Dates: start: 20070720
  2. SULFAMETIZOL [Concomitant]
     Indication: CYSTITIS
     Dosage: 1 G, 2X/DAY
     Route: 064
     Dates: start: 20070228
  3. CLOTRIMAZOLE [Concomitant]
     Indication: VULVOVAGINAL CANDIDIASIS
     Dosage: 100 MG, 1X/DAY
     Route: 064
  4. ZOLOFT [Suspect]
     Indication: DEPRESSION
     Dosage: UNK
     Route: 064
  5. SELEXID [Concomitant]
     Indication: CYSTITIS
     Dosage: 400 MG, 3X/DAY
     Route: 064
     Dates: start: 20070411
  6. AMOXICILLIN [Concomitant]
     Indication: INFECTION
     Dosage: 750 MG, 2X/DAY
     Route: 064
     Dates: start: 20070327

REACTIONS (4)
  - INCONTINENCE [None]
  - MATERNAL EXPOSURE TIMING UNSPECIFIED [None]
  - SPEECH DISORDER DEVELOPMENTAL [None]
  - TONGUE DISORDER [None]
